FAERS Safety Report 21861230 (Version 2)
Quarter: 2023Q2

REPORT INFORMATION
  Report Type: Spontaneous
  Country: JP (occurrence: JP)
  Receive Date: 20230113
  Receipt Date: 20230403
  Transmission Date: 20230721
  Serious: Yes (Death, Hospitalization, Other)
  Sender: FDA-Public Use
  Company Number: JP-ONO-2023JP000886

PATIENT
  Age: 65 Year
  Sex: Male
  Weight: 50 kg

DRUGS (3)
  1. OPDIVO [Suspect]
     Active Substance: NIVOLUMAB
     Indication: Gastric cancer
     Route: 041
     Dates: start: 20221202, end: 20221202
  2. OPDIVO [Suspect]
     Active Substance: NIVOLUMAB
     Route: 041
     Dates: end: 20221227
  3. OXALIPLATIN [Suspect]
     Active Substance: OXALIPLATIN
     Indication: Gastric cancer
     Route: 042
     Dates: start: 20221202, end: 20221202

REACTIONS (5)
  - Immune-mediated myasthenia gravis [Fatal]
  - Immune-mediated myositis [Fatal]
  - Immune-mediated myocarditis [Fatal]
  - Treatment noncompliance [Unknown]
  - Weight decreased [Unknown]

NARRATIVE: CASE EVENT DATE: 20221202
